FAERS Safety Report 8246445-3 (Version None)
Quarter: 2012Q1

REPORT INFORMATION
  Report Type: 
  Country: None (occurrence: None)
  Receive Date: 20120330
  Receipt Date: 20120320
  Transmission Date: 20120608
  Serious: Yes (Other)
  Sender: FDA-Public Use
  Company Number: BR-JNJFOC-20120310306

PATIENT

DRUGS (5)
  1. TOPIRAMATE [Suspect]
     Dosage: 50 MG TWICE DAILY FROM THE 35TH DAY ONWARDS
     Route: 048
  2. TOPIRAMATE [Suspect]
     Indication: MIGRAINE
     Dosage: 25 MG IN THE MORNING AND 50 MG AT NIGHT FOR 14 DAYS
     Route: 048
  3. TOPIRAMATE [Suspect]
     Dosage: 10 DAYS
     Route: 048
  4. TOPIRAMATE [Suspect]
     Dosage: 25 MG IN THE MORNING AND 50 MG AT DINNER
     Route: 048
  5. TOPIRAMATE [Suspect]
     Dosage: 10 DAYS
     Route: 048

REACTIONS (2)
  - MEMORY IMPAIRMENT [None]
  - SEDATION [None]
